FAERS Safety Report 9042895 (Version 1)
Quarter: 2013Q1

REPORT INFORMATION
  Report Type: Report from Study
  Country: US (occurrence: US)
  Receive Date: 20130129
  Receipt Date: 20130129
  Transmission Date: 20140127
  Serious: No
  Sender: FDA-Public Use
  Company Number: US-ABBOTT-12P-163-0910188-00

PATIENT
  Age: 59 Year
  Sex: Female

DRUGS (15)
  1. HUMIRA 40 MG/0.8 ML PEN [Suspect]
     Indication: RHEUMATOID ARTHRITIS
     Dates: start: 20120215
  2. HUMIRA 40 MG/0.8 ML PEN [Suspect]
  3. PREDNISONE [Concomitant]
     Indication: ARTHRITIS
  4. LOSARTAN [Concomitant]
     Indication: BLOOD PRESSURE
  5. METFORMIN ER [Concomitant]
     Indication: TYPE 2 DIABETES MELLITUS
  6. LEVOTHYROXINE [Concomitant]
     Indication: THYROID DISORDER
  7. HCTZ [Concomitant]
     Indication: BLOOD PRESSURE
  8. CARISOPRODOL [Concomitant]
     Indication: PRODUCT USED FOR UNKNOWN INDICATION
     Dosage: AT NIGHT
  9. AMLODIPINE [Concomitant]
     Indication: BLOOD PRESSURE
  10. SIMAVASTIN [Concomitant]
     Indication: BLOOD CHOLESTEROL
     Dosage: AT NIGHT
  11. HYDROCODONE/APT [Concomitant]
     Indication: PAIN
     Dosage: 7.5/500MG
  12. CITALOPRAM [Concomitant]
     Indication: NERVOUSNESS
     Dosage: AT NIGHT
  13. GABAPENTIN [Concomitant]
     Indication: PARAESTHESIA
     Dosage: AT NIGHT
  14. FISH OIL [Concomitant]
     Indication: PRODUCT USED FOR UNKNOWN INDICATION
  15. VITAMIN D [Concomitant]
     Indication: PRODUCT USED FOR UNKNOWN INDICATION

REACTIONS (6)
  - Injection site pain [Recovered/Resolved]
  - Back pain [Not Recovered/Not Resolved]
  - Gait disturbance [Not Recovered/Not Resolved]
  - Oropharyngeal pain [Not Recovered/Not Resolved]
  - Pain in jaw [Not Recovered/Not Resolved]
  - Chills [Not Recovered/Not Resolved]
